FAERS Safety Report 8341538-4 (Version None)
Quarter: 2012Q2

REPORT INFORMATION
  Report Type: 
  Country: None (occurrence: None)
  Receive Date: 20120507
  Receipt Date: 20100427
  Transmission Date: 20120825
  Serious: No
  Sender: FDA-Public Use
  Company Number: US-TEVA-2010001783

PATIENT
  Age: 82 Year
  Sex: Male
  Weight: 80.358 kg

DRUGS (4)
  1. TREANDA [Suspect]
     Indication: NON-HODGKIN'S LYMPHOMA
     Route: 042
     Dates: start: 20100309
  2. COMPAZINE [Concomitant]
  3. ALLOPURINOL [Concomitant]
  4. ATIVAN [Concomitant]

REACTIONS (1)
  - RASH PRURITIC [None]
